FAERS Safety Report 11429628 (Version 3)
Quarter: 2015Q4

REPORT INFORMATION
  Report Type: Spontaneous
  Country: US (occurrence: US)
  Receive Date: 20150828
  Receipt Date: 20151208
  Transmission Date: 20160304
  Serious: Yes (Hospitalization)
  Sender: FDA-Public Use
  Company Number: US-BAYER-2015-407075

PATIENT
  Age: 34 Year
  Sex: Female
  Weight: 59.41 kg

DRUGS (2)
  1. MIRENA [Suspect]
     Active Substance: LEVONORGESTREL
     Indication: MENORRHAGIA
     Dosage: 20 MCG/24HR, CONT
     Route: 015
     Dates: start: 20100225, end: 20121010
  2. MIRENA [Suspect]
     Active Substance: LEVONORGESTREL
     Indication: MENORRHAGIA
     Dosage: 20 MCG/24HR, CONT
     Route: 015
     Dates: start: 20131023, end: 20140826

REACTIONS (6)
  - Injury [None]
  - Emotional distress [None]
  - Uterine perforation [None]
  - Pain [None]
  - Scar [None]
  - Device dislocation [None]

NARRATIVE: CASE EVENT DATE: 201408
